FAERS Safety Report 9782808 (Version 1)
Quarter: 2013Q4

REPORT INFORMATION
  Report Type: Spontaneous
  Country: US (occurrence: US)
  Receive Date: 20131226
  Receipt Date: 20131226
  Transmission Date: 20140711
  Serious: No
  Sender: FDA-Public Use
  Company Number: US-ABBVIE-13P-163-1086282-00

PATIENT
  Age: 80 Year
  Sex: Male
  Weight: 74 kg

DRUGS (6)
  1. LUPRON DEPOT [Suspect]
     Indication: PROSTATE CANCER
     Dates: start: 20130429
  2. AVODART [Concomitant]
     Indication: PROSTATOMEGALY
  3. TAMSULOSIN [Concomitant]
     Indication: PROSTATOMEGALY
  4. BICALUTAMIDE [Concomitant]
     Indication: PROSTATE CANCER
  5. PRADAXA [Concomitant]
     Indication: PROPHYLAXIS
  6. PRADAXA [Concomitant]
     Indication: THROMBOSIS

REACTIONS (4)
  - Asthenia [Not Recovered/Not Resolved]
  - Dizziness [Not Recovered/Not Resolved]
  - Insomnia [Not Recovered/Not Resolved]
  - Decreased appetite [Not Recovered/Not Resolved]
